FAERS Safety Report 19758060 (Version 1)
Quarter: 2021Q3

REPORT INFORMATION
  Report Type: Report from Study
  Country: US (occurrence: US)
  Receive Date: 20210828
  Receipt Date: 20210828
  Transmission Date: 20211014
  Serious: Yes (Hospitalization, Other)
  Sender: FDA-Public Use
  Company Number: US-SHIRE-US201717453

PATIENT
  Age: 52 Year
  Sex: Male
  Weight: 87.53 kg

DRUGS (16)
  1. FAMOTIDINE. [Concomitant]
     Active Substance: FAMOTIDINE
     Indication: PROPHYLAXIS AGAINST GASTROINTESTINAL ULCER
     Dosage: 20.0 MG, 1X/DAY:QD
     Route: 042
     Dates: start: 20170607
  2. TEDUGLUTIDE [Suspect]
     Active Substance: TEDUGLUTIDE
     Indication: SHORT-BOWEL SYNDROME
     Dosage: 5.0 MG, 1X/DAY:QD
     Route: 058
     Dates: start: 20160614, end: 20161208
  3. TEDUGLUTIDE [Suspect]
     Active Substance: TEDUGLUTIDE
     Indication: SHORT-BOWEL SYNDROME
     Dosage: 5.0 MG, 1X/DAY:QD
     Route: 058
     Dates: start: 20160614, end: 20161208
  4. VITAMIN A [Concomitant]
     Active Substance: VITAMIN A
     Indication: SUPPLEMENTATION THERAPY
     Dosage: 10000.0 IU, 1X/DAY:QD
     Route: 048
     Dates: start: 20170607
  5. CREON [Concomitant]
     Active Substance: PANCRELIPASE AMYLASE\PANCRELIPASE LIPASE\PANCRELIPASE PROTEASE
     Indication: GASTROINTESTINAL DISORDER
     Dosage: 1.0 DF, UNKNOWN
     Route: 048
     Dates: start: 20170607
  6. TEDUGLUTIDE [Suspect]
     Active Substance: TEDUGLUTIDE
     Dosage: 5 MILLIGRAM (0.05 TED DAILY MG KG, 7 DOSES PER WEEK)
     Route: 065
     Dates: start: 20181003
  7. CREON [Concomitant]
     Active Substance: PANCRELIPASE AMYLASE\PANCRELIPASE LIPASE\PANCRELIPASE PROTEASE
     Indication: SHORT-BOWEL SYNDROME
  8. LOMOTIL [Concomitant]
     Active Substance: ATROPINE SULFATE\DIPHENOXYLATE HYDROCHLORIDE
     Indication: COLECTOMY
  9. TEDUGLUTIDE [Suspect]
     Active Substance: TEDUGLUTIDE
     Indication: SHORT-BOWEL SYNDROME
     Dosage: 5.0 MG, 1X/DAY:QD
     Route: 058
     Dates: start: 20160614, end: 20161208
  10. TEDUGLUTIDE [Suspect]
     Active Substance: TEDUGLUTIDE
     Indication: SHORT-BOWEL SYNDROME
     Dosage: 5.0 MG, 1X/DAY:QD
     Route: 058
     Dates: start: 20160614, end: 20161208
  11. TEDUGLUTIDE [Suspect]
     Active Substance: TEDUGLUTIDE
     Dosage: 5 MILLIGRAM (0.05 TED DAILY MG KG, 7 DOSES PER WEEK)
     Route: 065
     Dates: start: 20181003
  12. TEDUGLUTIDE [Suspect]
     Active Substance: TEDUGLUTIDE
     Dosage: 5 MILLIGRAM (0.05 TED DAILY MG KG, 7 DOSES PER WEEK)
     Route: 065
     Dates: start: 20181003
  13. TEDUGLUTIDE [Suspect]
     Active Substance: TEDUGLUTIDE
     Dosage: 5 MILLIGRAM (0.05 TED DAILY MG KG, 7 DOSES PER WEEK)
     Route: 065
     Dates: start: 20181003
  14. VITAMIN D [Concomitant]
     Active Substance: VITAMIN D NOS
     Indication: SUPPLEMENTATION THERAPY
     Dosage: 5000.0 IU, 2X/DAY:BID
     Route: 048
     Dates: start: 20170607
  15. LOPERAMIDE [Concomitant]
     Active Substance: LOPERAMIDE
     Indication: INTESTINAL FISTULA
  16. IMODIUM [Concomitant]
     Active Substance: LOPERAMIDE HYDROCHLORIDE
     Indication: COLECTOMY

REACTIONS (2)
  - Gastrointestinal haemorrhage [Recovered/Resolved]
  - Dehydration [Recovered/Resolved]

NARRATIVE: CASE EVENT DATE: 20170701
